FAERS Safety Report 15008757 (Version 1)
Quarter: 2018Q2

REPORT INFORMATION
  Report Type: Spontaneous
  Country: JP (occurrence: JP)
  Receive Date: 20180613
  Receipt Date: 20180613
  Transmission Date: 20180711
  Serious: Yes (Other)
  Sender: FDA-Public Use
  Company Number: PHJP2018JP012286

PATIENT
  Age: 68 Year
  Sex: Male

DRUGS (7)
  1. LUCENTIS [Suspect]
     Active Substance: RANIBIZUMAB
     Indication: POLYPOIDAL CHOROIDAL VASCULOPATHY
     Dosage: UNK
     Route: 031
     Dates: start: 20160531
  2. EYLEA [Concomitant]
     Active Substance: AFLIBERCEPT
     Dosage: UNK (TWICE)
     Route: 031
  3. LUCENTIS [Suspect]
     Active Substance: RANIBIZUMAB
     Dosage: UNK UNK, QMO
     Route: 031
     Dates: start: 20170615
  4. EYLEA [Concomitant]
     Active Substance: AFLIBERCEPT
     Indication: POLYPOIDAL CHOROIDAL VASCULOPATHY
     Dosage: UNK
     Route: 031
     Dates: start: 20170328
  5. LUCENTIS [Suspect]
     Active Substance: RANIBIZUMAB
     Dosage: UNK
     Route: 031
     Dates: start: 20170124
  6. FLUORESCEIN SODIUM. [Suspect]
     Active Substance: FLUORESCEIN SODIUM
     Indication: ANGIOGRAM RETINA
     Dosage: UNK UNK, ONCE/SINGLE
     Route: 040
  7. LUCENTIS [Suspect]
     Active Substance: RANIBIZUMAB
     Dosage: UNK
     Route: 031
     Dates: start: 20160705

REACTIONS (4)
  - Visual acuity reduced [Unknown]
  - Eye pruritus [Unknown]
  - Polypoidal choroidal vasculopathy [Unknown]
  - Disease progression [Unknown]

NARRATIVE: CASE EVENT DATE: 20170615
